FAERS Safety Report 17977372 (Version 2)
Quarter: 2020Q4

REPORT INFORMATION
  Report Type: Spontaneous
  Country: FR (occurrence: FR)
  Receive Date: 20200703
  Receipt Date: 20201211
  Transmission Date: 20210113
  Serious: Yes (Hospitalization)
  Sender: FDA-Public Use
  Company Number: FR-TEVA-2020-FR-1794058

PATIENT
  Age: 69 Year
  Sex: Female
  Weight: 64.5 kg

DRUGS (20)
  1. ALLOPURINOL. [Suspect]
     Active Substance: ALLOPURINOL
     Indication: GOUT
     Dosage: 300 MG
     Route: 048
     Dates: end: 20200518
  2. BACTRIM [Suspect]
     Active Substance: SULFAMETHOXAZOLE\TRIMETHOPRIM
     Indication: LUNG DISORDER
     Dosage: 3 DF
     Route: 042
     Dates: start: 20200406, end: 20200407
  3. FUROSEMIDE. [Concomitant]
     Active Substance: FUROSEMIDE
  4. AZITHROMYCINE [Suspect]
     Active Substance: AZITHROMYCIN
     Indication: CORONAVIRUS INFECTION
     Dosage: 250 MG
     Route: 048
     Dates: start: 20200411, end: 20200423
  5. PLAQUENIL [Suspect]
     Active Substance: HYDROXYCHLOROQUINE SULFATE
     Indication: CORONAVIRUS INFECTION
     Dosage: 400 MG
     Route: 048
     Dates: start: 20200411, end: 20200423
  6. ROVAMYCINE [Suspect]
     Active Substance: SPIRAMYCIN
     Indication: LUNG DISORDER
     Route: 042
     Dates: start: 20200405, end: 20200406
  7. CEFEPIME GERDA 1 G, POUDRE POUR SOLUTION INJECTABLE (IM/IV) [Suspect]
     Active Substance: CEFEPIME HYDROCHLORIDE
     Indication: LUNG DISORDER
     Dosage: 1 GRAM
     Route: 042
     Dates: start: 20200405, end: 20200406
  8. LOXEN L P 50 MG, GELULE A LIBERATION PROLONGEE [Concomitant]
     Active Substance: NICARDIPINE HYDROCHLORIDE
  9. ATORVASTATINE [Concomitant]
     Active Substance: ATORVASTATIN
  10. ACIDE FOLIQUE [Suspect]
     Active Substance: FOLIC ACID
     Indication: VITAMIN SUPPLEMENTATION
     Dosage: 5 MG
     Route: 048
     Dates: start: 20200218, end: 20200430
  11. LANSOPRAZOLE MYLAN 15 MG, GELULE GASTRO-RESISTANTE [Suspect]
     Active Substance: LANSOPRAZOLE
     Indication: PRODUCT USED FOR UNKNOWN INDICATION
     Dosage: 4 DF
     Route: 048
     Dates: start: 20200405, end: 20200406
  12. CALCIPARINE [Suspect]
     Active Substance: HEPARIN CALCIUM
     Indication: VASCULAR DISORDER PROPHYLAXIS
     Dosage: 10000 IU
     Route: 058
     Dates: start: 20200405, end: 20200406
  13. ADVAGRAF 1 MG, GELULE A LIBERATION PROLONGEE [Concomitant]
     Active Substance: TACROLIMUS
     Dosage: ADVAGRAF 1 MG, GELULE A LIBERATION PROLONGEE
  14. CHOLECALCIFEROL [Suspect]
     Active Substance: CHOLECALCIFEROL
     Indication: VITAMIN SUPPLEMENTATION
     Dosage: 1 DF
     Route: 048
     Dates: end: 20200513
  15. NOVORAPID [Concomitant]
     Active Substance: INSULIN ASPART
  16. ARANESP [Concomitant]
     Active Substance: DARBEPOETIN ALFA
  17. LANTUS [Concomitant]
     Active Substance: INSULIN GLARGINE
  18. FLECAINE 100 MG, COMPRIME SECABLE [Concomitant]
     Active Substance: FLECAINIDE ACETATE
     Dosage: FLECAINE 100 MG, COMPRIME SECABLE
  19. ATENOLOL. [Suspect]
     Active Substance: ATENOLOL
     Indication: HYPERTENSION
     Dosage: 50 MG
     Route: 048
     Dates: end: 20200709
  20. PREDNISONE. [Concomitant]
     Active Substance: PREDNISONE

REACTIONS (3)
  - Cholestasis [Recovering/Resolving]
  - Rash pustular [Recovered/Resolved]
  - Hepatocellular injury [Not Recovered/Not Resolved]

NARRATIVE: CASE EVENT DATE: 20200502
